FAERS Safety Report 6997226-X (Version None)
Quarter: 2010Q3

REPORT INFORMATION
  Report Type: 
  Country: None (occurrence: None)
  Receive Date: 20100918
  Receipt Date: 20090924
  Transmission Date: 20110219
  Serious: No
  Sender: FDA-Public Use
  Company Number: US-WYE-H11208309

PATIENT
  Sex: Female
  Weight: 64.47 kg

DRUGS (2)
  1. PRISTIQ [Suspect]
     Indication: DEPRESSION
     Route: 048
     Dates: start: 20090101
  2. CLONAZEPAM [Concomitant]

REACTIONS (5)
  - ABNORMAL DREAMS [None]
  - CONDITION AGGRAVATED [None]
  - FATIGUE [None]
  - PAIN IN EXTREMITY [None]
  - TINNITUS [None]
